FAERS Safety Report 4643541-4 (Version None)
Quarter: 2005Q2

REPORT INFORMATION
  Report Type: 
  Country: None (occurrence: None)
  Receive Date: 20050425
  Receipt Date: 20050413
  Transmission Date: 20051028
  Serious: Yes (Other)
  Sender: FDA-Public Use
  Company Number: US-JNJFOC-20050300978

PATIENT
  Sex: Female
  Weight: 89 kg

DRUGS (26)
  1. REMICADE [Suspect]
     Route: 042
  2. REMICADE [Suspect]
     Indication: RHEUMATOID ARTHRITIS
     Route: 042
  3. METHOTREXATE [Concomitant]
  4. SSRI [Concomitant]
  5. SULFASALAZINE [Concomitant]
  6. METHOTREXATE [Concomitant]
     Indication: RHEUMATOID ARTHRITIS
  7. SALSALATE [Concomitant]
     Indication: RHEUMATOID ARTHRITIS
  8. VITAMINS [Concomitant]
     Indication: NUTRITIONAL SUPPORT
  9. RABEPRAZOLE SODIUM [Concomitant]
  10. MULTI-VITAMIN [Concomitant]
  11. MULTI-VITAMIN [Concomitant]
  12. MULTI-VITAMIN [Concomitant]
  13. MULTI-VITAMIN [Concomitant]
  14. MULTI-VITAMIN [Concomitant]
  15. MULTI-VITAMIN [Concomitant]
  16. MULTI-VITAMIN [Concomitant]
  17. MULTI-VITAMIN [Concomitant]
     Indication: NUTRITIONAL SUPPORT
  18. FOLIC ACID [Concomitant]
     Indication: NUTRITIONAL SUPPORT
  19. HUMALOG [Concomitant]
     Route: 030
  20. HUMALOG [Concomitant]
     Route: 030
  21. DOXYCYCLINE [Concomitant]
     Indication: BRONCHITIS
     Dosage: X 10 DAYS
  22. ALBUTEROL [Concomitant]
     Indication: BRONCHITIS
     Dosage: ACUTE NEED
  23. DIPHENHYDRAMINE HCL [Concomitant]
     Indication: BRONCHITIS
     Dosage: EVERY 4-6 HOURS; ACUTE NEED
  24. PAROXETINE HCL [Concomitant]
  25. PAROXETINE HCL [Concomitant]
     Indication: DEPRESSION
  26. TYLENOL W/ CODEINE [Concomitant]
     Indication: RHEUMATOID ARTHRITIS
     Dosage: 30/300, 1-2 TABS EVERY 4-6 HOURS

REACTIONS (7)
  - CHEST PAIN [None]
  - DYSPNOEA [None]
  - HYPOXIA [None]
  - INFUSION RELATED REACTION [None]
  - PRURITUS [None]
  - THROAT IRRITATION [None]
  - URTICARIA [None]
